FAERS Safety Report 17256383 (Version 1)
Quarter: 2020Q1

REPORT INFORMATION
  Report Type: Spontaneous
  Country: US (occurrence: US)
  Receive Date: 20200110
  Receipt Date: 20200110
  Transmission Date: 20200409
  Serious: No
  Sender: FDA-Public Use
  Company Number: US-AMGEN-USASP2020002179

PATIENT
  Age: 66 Year
  Sex: Female

DRUGS (3)
  1. VASCEPA [Concomitant]
     Active Substance: ICOSAPENT ETHYL
  2. REPATHA [Suspect]
     Active Substance: EVOLOCUMAB
     Indication: BLOOD CHOLESTEROL INCREASED
     Dosage: 140 MILLIGRAM, Q2WK
     Route: 065
     Dates: start: 2019
  3. ZYPITAMAG [Concomitant]
     Active Substance: PITAVASTATIN

REACTIONS (3)
  - Device malfunction [Unknown]
  - Pruritus [Unknown]
  - Eczema [Unknown]

NARRATIVE: CASE EVENT DATE: 2019
